FAERS Safety Report 8002493-X (Version None)
Quarter: 2011Q4

REPORT INFORMATION
  Report Type: 
  Country: None (occurrence: None)
  Receive Date: 20111222
  Receipt Date: 20110211
  Transmission Date: 20120403
  Serious: Yes (Other)
  Sender: FDA-Public Use
  Company Number: US-PFIZER INC-2011031314

PATIENT
  Sex: Female
  Weight: 65.76 kg

DRUGS (8)
  1. LEVOXYL [Concomitant]
     Indication: HYPERTHYROIDISM
     Dosage: 50UG, DAILY
     Dates: start: 20060101
  2. FISH OIL [Concomitant]
     Indication: MEDICAL DIET
     Dosage: UNK
  3. ACCUPRIL [Concomitant]
     Indication: AORTIC VALVE INCOMPETENCE
     Dosage: 5 MG, DAILY
  4. LIPITOR [Suspect]
     Dosage: 20 MG, DAILY
     Route: 048
  5. COMBIGAN [Concomitant]
     Indication: GLAUCOMA
     Dosage: UNK, 2X/DAY
  6. SPIRONOLACTONE [Concomitant]
     Indication: GENERALISED OEDEMA
     Dosage: 25 MG, DAILY
  7. LIPITOR [Suspect]
     Indication: TRANSIENT ISCHAEMIC ATTACK
     Dosage: 80 MG, DAILY
     Route: 048
     Dates: start: 20060101
  8. PLAVIX [Suspect]
     Indication: TRANSIENT ISCHAEMIC ATTACK
     Dosage: UNK

REACTIONS (3)
  - MOVEMENT DISORDER [None]
  - CATARACT OPERATION [None]
  - EYE HAEMORRHAGE [None]
